FAERS Safety Report 5838379-6 (Version None)
Quarter: 2008Q3

REPORT INFORMATION
  Report Type: 
  Country: None (occurrence: None)
  Receive Date: 20080808
  Receipt Date: 20080729
  Transmission Date: 20090109
  Serious: Yes (Other)
  Sender: FDA-Public Use
  Company Number: FR-AMGEN-UK274287

PATIENT
  Sex: Male

DRUGS (4)
  1. MIMPARA [Suspect]
     Indication: HYPERPARATHYROIDISM SECONDARY
     Route: 048
     Dates: start: 20070604
  2. PERMIXON [Concomitant]
     Route: 065
  3. LASIX [Concomitant]
     Route: 065
  4. UN-ALFA [Concomitant]
     Route: 065

REACTIONS (1)
  - CEREBELLAR SYNDROME [None]
